FAERS Safety Report 9557432 (Version 1)
Quarter: 2013Q3

REPORT INFORMATION
  Report Type: Spontaneous
  Country: US (occurrence: US)
  Receive Date: 20130926
  Receipt Date: 20130926
  Transmission Date: 20140515
  Serious: Yes (Hospitalization, Other)
  Sender: FDA-Public Use
  Company Number: US-GILEAD-2013-0084165

PATIENT
  Sex: Female

DRUGS (2)
  1. LETAIRIS [Suspect]
     Indication: PRODUCT USED FOR UNKNOWN INDICATION
     Dosage: 5 MG, QD
     Dates: start: 20130606
  2. REVATIO [Concomitant]

REACTIONS (3)
  - Convulsion [Unknown]
  - Petit mal epilepsy [Not Recovered/Not Resolved]
  - Abnormal behaviour [Not Recovered/Not Resolved]
